FAERS Safety Report 9814642 (Version 1)
Quarter: 2014Q1

REPORT INFORMATION
  Report Type: Spontaneous
  Country: DK (occurrence: FR)
  Receive Date: 20140113
  Receipt Date: 20140113
  Transmission Date: 20141002
  Serious: Yes (Hospitalization)
  Sender: FDA-Public Use
  Company Number: FR-FRI-1000052785

PATIENT
  Age: 85 Year
  Sex: Female

DRUGS (10)
  1. ESCITALOPRAM [Suspect]
     Dosage: 1 DF
     Route: 048
  2. PRADAXA [Interacting]
     Dosage: 2 DF
     Route: 048
     Dates: start: 20130601, end: 20131101
  3. METEOSPASMYL [Concomitant]
     Dosage: 2 DF
     Route: 048
  4. FORLAX [Concomitant]
     Dosage: 4 GRAM
     Route: 048
  5. FUROSEMIDE [Concomitant]
     Dosage: 40 MG
     Route: 048
  6. HEMIGOXINE NATIVELLE [Concomitant]
     Route: 048
  7. KALEORID [Concomitant]
     Dosage: 1 DF
     Route: 048
  8. ZOLPIDEM [Concomitant]
     Dosage: 1 DF
     Route: 048
  9. DOLIPRANE [Concomitant]
     Dosage: 3 DF
     Route: 048
  10. EXELON [Concomitant]
     Dosage: 1 DF
     Route: 062
     Dates: start: 20130701

REACTIONS (2)
  - Cerebral haematoma [Recovered/Resolved with Sequelae]
  - Drug interaction [Recovered/Resolved with Sequelae]
